FAERS Safety Report 25588561 (Version 1)
Quarter: 2025Q3

REPORT INFORMATION
  Report Type: Report from Study
  Country: US (occurrence: US)
  Receive Date: 20250722
  Receipt Date: 20250722
  Transmission Date: 20251021
  Serious: Yes (Hospitalization, Other)
  Sender: CSL BEHRING
  Company Number: US-BEH-2025212188

PATIENT
  Age: 31 Year
  Sex: Female
  Weight: 70.295 kg

DRUGS (5)
  1. BERINERT [Suspect]
     Active Substance: HUMAN C1-ESTERASE INHIBITOR
     Indication: Hereditary angioedema
     Dosage: 2000 IU, BIW
     Route: 058
  2. BERINERT [Suspect]
     Active Substance: HUMAN C1-ESTERASE INHIBITOR
     Indication: Prophylaxis
     Dosage: 4000 IU, BIW
     Route: 058
     Dates: start: 20250710, end: 20250710
  3. BERINERT [Suspect]
     Active Substance: HUMAN C1-ESTERASE INHIBITOR
     Dosage: 2000 IU, BIW
     Route: 058
     Dates: start: 20250708, end: 20250710
  4. BERINERT [Suspect]
     Active Substance: HUMAN C1-ESTERASE INHIBITOR
     Dosage: 2000 IU/KG, BIW
     Route: 058
  5. BERINERT [Suspect]
     Active Substance: HUMAN C1-ESTERASE INHIBITOR
     Dosage: 4000 IU/KG, BIW
     Route: 058
     Dates: start: 20250716, end: 20250716

REACTIONS (7)
  - Hereditary angioedema [Unknown]
  - Product dose omission issue [Recovering/Resolving]
  - Hereditary angioedema [Recovering/Resolving]
  - Weight decreased [Unknown]
  - Product dose omission issue [Not Recovered/Not Resolved]
  - Product use issue [Not Recovered/Not Resolved]
  - Insurance issue [Not Recovered/Not Resolved]

NARRATIVE: CASE EVENT DATE: 20250101
